FAERS Safety Report 25031504 (Version 1)
Quarter: 2025Q1

REPORT INFORMATION
  Report Type: Spontaneous
  Country: US (occurrence: US)
  Receive Date: 20250303
  Receipt Date: 20250303
  Transmission Date: 20250409
  Serious: Yes (Other)
  Sender: MYLAN
  Company Number: US-MYLANLABS-2025M1017262

PATIENT
  Age: 65 Year
  Sex: Female
  Weight: 87.5 kg

DRUGS (1)
  1. GABAPENTIN [Suspect]
     Active Substance: GABAPENTIN
     Indication: Neuropathy peripheral
     Dosage: 100 MILLIGRAM, TID (2 CAPSULES, THREE TIMES A DAY)

REACTIONS (2)
  - Neuropathy peripheral [Unknown]
  - Off label use [Unknown]
